FAERS Safety Report 12134577 (Version 1)
Quarter: 2016Q1

REPORT INFORMATION
  Report Type: Report from Study
  Country: JP (occurrence: JP)
  Receive Date: 20160301
  Receipt Date: 20160301
  Transmission Date: 20160526
  Serious: Yes (Other)
  Sender: FDA-Public Use
  Company Number: JP-INCYTE CORPORATION-2016IN001037

PATIENT
  Age: 80 Year
  Sex: Male

DRUGS (2)
  1. JAKAFI [Suspect]
     Active Substance: RUXOLITINIB
     Indication: MYELOFIBROSIS
     Dosage: 7.5 MG, BID
     Route: 048
     Dates: start: 20150313, end: 20150326
  2. JAKAFI [Suspect]
     Active Substance: RUXOLITINIB
     Dosage: 2.5 MG, BID
     Route: 048
     Dates: start: 20150410, end: 20150424

REACTIONS (1)
  - Headache [Recovered/Resolved]

NARRATIVE: CASE EVENT DATE: 20150321
